FAERS Safety Report 9177911 (Version 1)
Quarter: 2013Q1

REPORT INFORMATION
  Report Type: Spontaneous
  Country: US (occurrence: US)
  Receive Date: 20130321
  Receipt Date: 20130321
  Transmission Date: 20140127
  Serious: No
  Sender: FDA-Public Use
  Company Number: US-B.I. PHARMACEUTICALS,INC./RIDGEFIELD-2013-BI-06954BP

PATIENT
  Age: 71 Year
  Sex: Female
  Weight: 59 kg

DRUGS (5)
  1. SPIRIVA [Suspect]
     Indication: CHRONIC OBSTRUCTIVE PULMONARY DISEASE
     Dosage: 18 MCG
     Route: 055
     Dates: start: 2003
  2. ALBUTEROL NEBULIZER [Concomitant]
     Indication: CHRONIC OBSTRUCTIVE PULMONARY DISEASE
     Route: 055
     Dates: start: 1988
  3. ADVAIR [Concomitant]
     Indication: CHRONIC OBSTRUCTIVE PULMONARY DISEASE
     Route: 055
     Dates: start: 1998
  4. PRIMIDONE [Concomitant]
     Indication: TREMOR
     Dosage: 25 MG
     Route: 048
     Dates: start: 201301
  5. CALCIUM AND VITAMIN D [Concomitant]
     Route: 048

REACTIONS (1)
  - Lower respiratory tract infection [Not Recovered/Not Resolved]
